FAERS Safety Report 24729290 (Version 1)
Quarter: 2024Q4

REPORT INFORMATION
  Report Type: Spontaneous
  Country: US (occurrence: US)
  Receive Date: 20241213
  Receipt Date: 20241213
  Transmission Date: 20250115
  Serious: No
  Sender: RANBAXY
  Company Number: US-SUN PHARMACEUTICAL INDUSTRIES LTD-2024R1-477422

PATIENT

DRUGS (1)
  1. LISDEXAMFETAMINE [Suspect]
     Active Substance: LISDEXAMFETAMINE
     Indication: Product used for unknown indication
     Dosage: UNK
     Route: 065

REACTIONS (5)
  - Drug ineffective [Unknown]
  - Somnolence [Unknown]
  - Fatigue [Unknown]
  - Brain fog [Unknown]
  - Withdrawal syndrome [Unknown]
